FAERS Safety Report 7409145-5 (Version None)
Quarter: 2011Q2

REPORT INFORMATION
  Report Type: 
  Country: None (occurrence: None)
  Receive Date: 20110412
  Receipt Date: 20110330
  Transmission Date: 20111010
  Serious: Yes (Death, Other)
  Sender: FDA-Public Use
  Company Number: JP-ROCHE-769189

PATIENT
  Age: 61 Year
  Sex: Male

DRUGS (2)
  1. AVASTIN [Suspect]
     Indication: NON-SMALL CELL LUNG CANCER
     Route: 041
     Dates: start: 20100805, end: 20110225
  2. MELOXICAM [Concomitant]
     Dosage: NOTE: DOSAGE IS UNCERTAIN.
     Route: 048

REACTIONS (2)
  - HAEMOPTYSIS [None]
  - SHOCK HAEMORRHAGIC [None]
